FAERS Safety Report 21733087 (Version 1)
Quarter: 2022Q4

REPORT INFORMATION
  Report Type: Spontaneous
  Country: US (occurrence: None)
  Receive Date: 20221214
  Receipt Date: 20221214
  Transmission Date: 20230113
  Serious: Yes (Death)
  Sender: FDA-Public Use
  Company Number: None

PATIENT
  Age: 75 Year
  Sex: Male
  Weight: 87.91 kg

DRUGS (9)
  1. INLYTA [Suspect]
     Active Substance: AXITINIB
     Indication: Renal cancer
     Dosage: OTHER FREQUENCY : 21DON7DAYOFF;?
     Dates: start: 20220815, end: 20221207
  2. ALBUTEROL [Concomitant]
  3. AMLODIPINE [Concomitant]
     Active Substance: AMLODIPINE BESYLATE
  4. ATORVASTATIN [Concomitant]
  5. DOCUSATE [Concomitant]
  6. LISINOPRIL-HYDROCHLOROTHIAZIDE [Concomitant]
  7. MULTIPLEVITAMIN [Concomitant]
  8. SPIRONOLACTONE [Concomitant]
  9. VITAMIN C [Concomitant]

REACTIONS (6)
  - Gastrointestinal haemorrhage [None]
  - Malnutrition [None]
  - Dehydration [None]
  - Cancer pain [None]
  - Hypotension [None]
  - Fall [None]

NARRATIVE: CASE EVENT DATE: 20221207
